FAERS Safety Report 9833126 (Version 1)
Quarter: 2014Q1

REPORT INFORMATION
  Report Type: Spontaneous
  Country: US (occurrence: US)
  Receive Date: 20140121
  Receipt Date: 20140121
  Transmission Date: 20141002
  Serious: Yes (Death, Hospitalization, Other)
  Sender: FDA-Public Use
  Company Number: US-PFIZER INC-2014016962

PATIENT
  Age: 65 Year
  Sex: Male

DRUGS (15)
  1. ARGATROBAN [Suspect]
     Indication: HEPARIN-INDUCED THROMBOCYTOPENIA
     Dosage: 0.5 MCG/KG/MIN
     Route: 042
     Dates: start: 20140110, end: 20140111
  2. DUONEB [Concomitant]
  3. AUGMENTIN [Concomitant]
  4. BACLOFEN [Concomitant]
  5. CALTRATE + D [Concomitant]
  6. WARFARIN [Concomitant]
     Dosage: 1 DOSE, UNK
  7. LOVENOX [Concomitant]
     Dosage: UNK
  8. GABAPENTIN [Concomitant]
  9. GLIPIZIDE [Concomitant]
  10. MEROPENEM [Concomitant]
  11. SOLU-MEDROL [Concomitant]
  12. MIRALAX [Concomitant]
  13. PREDNISONE [Concomitant]
  14. RANITIDINE [Concomitant]
  15. CRESTOR [Concomitant]

REACTIONS (2)
  - Death [Fatal]
  - International normalised ratio increased [Not Recovered/Not Resolved]
